FAERS Safety Report 10388975 (Version 1)
Quarter: 2014Q1

REPORT INFORMATION
  Report Type: Spontaneous
  Country: US (occurrence: None)
  Receive Date: 20140306
  Receipt Date: 20140306
  Transmission Date: 20141002
  Serious: Yes (Other)
  Sender: FDA-Public Use
  Company Number: 163-21880-13032280

PATIENT
  Age: 72 Year
  Sex: Female
  Weight: 56.7 kg

DRUGS (6)
  1. REVLIMID [Suspect]
     Indication: PLASMA CELL MYELOMA
     Route: 048
     Dates: start: 200811, end: 2009
  2. CALCIUM + VITAMIN D (CALCIUM D3 ^STADA^) [Concomitant]
  3. FISH OIL [Concomitant]
  4. NEXIUM (ESOMEPRAZOLE) [Concomitant]
  5. POTASSIUM [Concomitant]
  6. ZIAC (BISELECT) [Concomitant]

REACTIONS (7)
  - White blood cell count decreased [None]
  - Red blood cell count decreased [None]
  - Dehydration [None]
  - Haematoma [None]
  - Diarrhoea [None]
  - Fall [None]
  - Gait disturbance [None]
